FAERS Safety Report 22619934 (Version 1)
Quarter: 2023Q2

REPORT INFORMATION
  Report Type: Spontaneous
  Country: CN (occurrence: CN)
  Receive Date: 20230620
  Receipt Date: 20230620
  Transmission Date: 20230722
  Serious: Yes (Death, Hospitalization)
  Sender: FDA-Public Use
  Company Number: CN-PFIZER INC-PV202300104285

PATIENT
  Age: 54 Year
  Sex: Male
  Weight: 67.5 kg

DRUGS (4)
  1. CRIZOTINIB [Suspect]
     Active Substance: CRIZOTINIB
     Indication: Sarcomatoid carcinoma of the lung
     Dosage: 250 MG, 2X/DAY
     Route: 048
  2. CATEQUENTINIB [Suspect]
     Active Substance: CATEQUENTINIB
     Indication: Sarcomatoid carcinoma of the lung
     Dosage: 12 MG, DAILY, DAYS 1-14 OF A 21-DAY CYCLE
     Route: 048
  3. CISPLATIN [Suspect]
     Active Substance: CISPLATIN
     Indication: Sarcomatoid carcinoma of the lung
     Dosage: 40 MG, DAILY, DAYS 1-3 OF A 21-DAY CYCLE
     Route: 042
  4. PACLITAXEL [Suspect]
     Active Substance: PACLITAXEL
     Indication: Sarcomatoid carcinoma of the lung
     Dosage: 480 MG, DAY-1
     Route: 042

REACTIONS (2)
  - Neoplasm progression [Fatal]
  - Multiple organ dysfunction syndrome [Fatal]
